FAERS Safety Report 7230967-8 (Version None)
Quarter: 2011Q1

REPORT INFORMATION
  Report Type: 
  Country: None (occurrence: None)
  Receive Date: 20110118
  Receipt Date: 20110106
  Transmission Date: 20110831
  Serious: Yes (Hospitalization)
  Sender: FDA-Public Use
  Company Number: FR-ROCHE-749001

PATIENT
  Sex: Female
  Weight: 63 kg

DRUGS (3)
  1. CAPECITABINE [Suspect]
     Dosage: AS PER PROTOCOL - ON DAYS 1 TO 14 EVERY 3 WEEKS
     Route: 048
  2. TRASTUZUMAB [Suspect]
     Dosage: LOADING DOSE - ADMINISTERED OVER 90 MINUTES - AS PER PROTOCOL
     Route: 042
  3. TRASTUZUMAB [Suspect]
     Dosage: MAINTENANCE DOSE - ADMINISTERED OVER 30 TO 90 MINUTES - AS PER PROTOCOL
     Route: 042

REACTIONS (2)
  - DIARRHOEA [None]
  - NAUSEA [None]
